FAERS Safety Report 7705015-3 (Version None)
Quarter: 2011Q3

REPORT INFORMATION
  Report Type: 
  Country: None (occurrence: None)
  Receive Date: 20110823
  Receipt Date: 20110812
  Transmission Date: 20111222
  Serious: Yes (Death)
  Sender: FDA-Public Use
  Company Number: TW-BAXTER-2011BH002665

PATIENT
  Sex: Male

DRUGS (6)
  1. EXTRANEAL [Suspect]
     Route: 033
     Dates: start: 20060901
  2. DIANEAL [Suspect]
     Indication: PERITONEAL DIALYSIS
     Route: 033
     Dates: start: 20060901, end: 20110109
  3. EXTRANEAL [Suspect]
     Indication: PERITONEAL DIALYSIS
     Route: 033
     Dates: start: 20060901
  4. DIANEAL [Suspect]
     Route: 033
     Dates: start: 20060901
  5. DIANEAL [Suspect]
     Route: 033
     Dates: start: 20060901, end: 20110109
  6. DIANEAL [Suspect]
     Indication: PERITONEAL DIALYSIS
     Route: 033
     Dates: start: 20060901

REACTIONS (1)
  - CEREBROVASCULAR ACCIDENT [None]
